FAERS Safety Report 4637186-X (Version None)
Quarter: 2005Q2

REPORT INFORMATION
  Report Type: 
  Country: None (occurrence: None)
  Receive Date: 20050416
  Receipt Date: 20050405
  Transmission Date: 20051028
  Serious: Yes (Death)
  Sender: FDA-Public Use
  Company Number: GB-JNJFOC-20050401538

PATIENT
  Sex: Male

DRUGS (2)
  1. REMICADE [Suspect]
     Indication: RHEUMATOID ARTHRITIS
     Dosage: PATIENT ON TREATMENT FOR MORE THAN 1 YEAR.
     Route: 042
  2. METHOTREXATE [Concomitant]
     Route: 065

REACTIONS (1)
  - DEATH [None]
